FAERS Safety Report 8511445-2 (Version None)
Quarter: 2012Q2

REPORT INFORMATION
  Report Type: 
  Country: None (occurrence: None)
  Receive Date: 20120629
  Receipt Date: 20120621
  Transmission Date: 20120825
  Serious: Yes (Life-Threatening)
  Sender: FDA-Public Use
  Company Number: 2012SP035680

PATIENT
  Age: 68 Year
  Sex: Female

DRUGS (7)
  1. ASPIRIN [Suspect]
     Indication: ACUTE MYOCARDIAL INFARCTION
     Dosage: 75 MG, QD, PO
     Route: 048
     Dates: start: 20120502
  2. METOPROLOL SUCCINATE [Concomitant]
  3. EPTIFIBATIDE [Suspect]
     Indication: STENT EMBOLISATION
     Dosage: INDRP
     Dates: start: 20120601
  4. SIMVASTATIN [Concomitant]
  5. HEPARIN [Suspect]
     Indication: PRODUCT USED FOR UNKNOWN INDICATION
     Dosage: UNK
  6. BRILIQUE (PLATELET AGGREGATION INHIBITORS) [Suspect]
     Indication: STENT EMBOLISATION
     Dosage: UNK, PO
     Route: 048
     Dates: start: 20120601
  7. PLAVIX [Concomitant]

REACTIONS (2)
  - GASTROINTESTINAL HAEMORRHAGE [None]
  - DRUG INTERACTION [None]
